FAERS Safety Report 8537564-2 (Version None)
Quarter: 2012Q3

REPORT INFORMATION
  Report Type: 
  Country: None (occurrence: None)
  Receive Date: 20120725
  Receipt Date: 20120712
  Transmission Date: 20120928
  Serious: No
  Sender: FDA-Public Use
  Company Number: US-ASTRAZENECA-2012SE48201

PATIENT
  Age: 87 Year
  Sex: Female
  Weight: 71.2 kg

DRUGS (4)
  1. NEXIUM [Suspect]
     Indication: GASTROOESOPHAGEAL REFLUX DISEASE
     Route: 048
  2. CADUET [Concomitant]
  3. TYLENOL [Concomitant]
  4. VALIUM [Concomitant]

REACTIONS (3)
  - BODY HEIGHT DECREASED [None]
  - MALAISE [None]
  - HYPOACUSIS [None]
